FAERS Safety Report 9313019 (Version 1)
Quarter: 2013Q2

REPORT INFORMATION
  Report Type: Spontaneous
  Country: US (occurrence: US)
  Receive Date: 20130528
  Receipt Date: 20130528
  Transmission Date: 20140414
  Serious: No
  Sender: FDA-Public Use
  Company Number: US-ABBOTT-13P-163-1088872-00

PATIENT
  Age: 65 Year
  Sex: Male
  Weight: 90.8 kg

DRUGS (5)
  1. ANDROGEL [Suspect]
     Indication: BLOOD TESTOSTERONE DECREASED
     Dates: start: 201206
  2. FLECAINIDE [Concomitant]
     Indication: ATRIAL FIBRILLATION
  3. PANTOPRAZOLE [Concomitant]
     Indication: GASTROOESOPHAGEAL REFLUX DISEASE
  4. CLOPIDOGREL [Concomitant]
     Indication: ANTICOAGULANT THERAPY
  5. DILTIAZEM [Concomitant]
     Indication: HYPERTENSION

REACTIONS (2)
  - Musculoskeletal pain [Not Recovered/Not Resolved]
  - Ejaculation failure [Not Recovered/Not Resolved]
